FAERS Safety Report 20290212 (Version 2)
Quarter: 2022Q2

REPORT INFORMATION
  Report Type: Report from Study
  Country: CA (occurrence: CA)
  Receive Date: 20220104
  Receipt Date: 20220411
  Transmission Date: 20220721
  Serious: Yes (Other)
  Sender: FDA-Public Use
  Company Number: CA-BAUSCH-BL-2020-037777

PATIENT

DRUGS (27)
  1. CONTRAVE [Suspect]
     Active Substance: BUPROPION HYDROCHLORIDE\NALTREXONE HYDROCHLORIDE
     Indication: Weight control
     Dosage: 90 MG/8 MG, ONE TAB DAILY
     Route: 048
     Dates: start: 20201125, end: 20201203
  2. CONTRAVE [Suspect]
     Active Substance: BUPROPION HYDROCHLORIDE\NALTREXONE HYDROCHLORIDE
     Dosage: 90 MG/8 MG, PATIENT IS IN WEEK 3 AND TAKING 2 TABLETS IN ONE DAY
     Route: 048
     Dates: start: 20201204, end: 20201214
  3. CONTRAVE [Suspect]
     Active Substance: BUPROPION HYDROCHLORIDE\NALTREXONE HYDROCHLORIDE
     Dosage: 90 MG/8 MG, TWO TABLETS TWO TIMES DAILY
     Route: 048
     Dates: start: 20201215, end: 202012
  4. CONTRAVE [Suspect]
     Active Substance: BUPROPION HYDROCHLORIDE\NALTREXONE HYDROCHLORIDE
     Dosage: 90 MG/8 MG, ONE TABLET TWO TIMES DAILY
     Route: 048
     Dates: start: 20201221
  5. CONTRAVE [Suspect]
     Active Substance: BUPROPION HYDROCHLORIDE\NALTREXONE HYDROCHLORIDE
     Dosage: 90 MG/8 MG, ONE TAB DAILY
     Route: 048
     Dates: start: 20211208, end: 20211214
  6. TRAZODONE [Suspect]
     Active Substance: TRAZODONE HYDROCHLORIDE
     Indication: Sleep disorder
     Dosage: BEDTIME (150 MG, 1 IN 1 BEDTIME )
     Route: 048
     Dates: end: 20210309
  7. TRAZODONE [Suspect]
     Active Substance: TRAZODONE HYDROCHLORIDE
     Dosage: BEDTIME, STOP DATE: 06/APR/2021 APPROXIMATELY (100 MG, 1 IN 1 D)
     Route: 048
     Dates: start: 20210310, end: 202104
  8. TRAZODONE [Suspect]
     Active Substance: TRAZODONE HYDROCHLORIDE
     Dosage: BEDTIME, START DATE: 07/APR/2021 APPROXIMATELY, ONGOING FOR A MONTH (50 MG, 1 IN 1 D)
     Route: 048
     Dates: start: 202104
  9. OMEGA 3 [Suspect]
     Active Substance: CAPSAICIN
     Indication: Product used for unknown indication
     Dosage: UNK
     Route: 065
     Dates: start: 20201125, end: 2020
  10. LITHIUM [Suspect]
     Active Substance: LITHIUM
     Indication: Affective disorder
     Dosage: 450 MG (1 IN 12 HR)
     Route: 048
  11. LITHIUM [Suspect]
     Active Substance: LITHIUM
     Dosage: 750 MG (1 IN 12 HR)
     Route: 048
     Dates: end: 20211117
  12. LITHIUM [Suspect]
     Active Substance: LITHIUM
     Dosage: BEDTIME (600 MG,1 IN 1 D)
     Route: 048
  13. LITHIUM [Suspect]
     Active Substance: LITHIUM
     Dosage: MORNING (150 MG)
     Route: 048
  14. MAGNESIUM [Concomitant]
     Active Substance: MAGNESIUM
     Indication: Routine health maintenance
     Dosage: DAILY (250 MG,1 IN 1 D)
     Route: 048
  15. QUETIAPINE [Concomitant]
     Active Substance: QUETIAPINE
     Indication: Anxiety
     Dosage: DAILY (300 MG,1 IN 1 D)
     Route: 048
  16. ESTRADIOL [Concomitant]
     Active Substance: ESTRADIOL
     Indication: Menopause
     Dosage: DAILY (0.5 MG,1 IN 1 D)
     Route: 048
  17. LUXA D [Concomitant]
     Indication: Routine health maintenance
     Dosage: DAILY (2000 IU, 1 IN 1 D)
     Route: 048
  18. CARVEDILOL [Concomitant]
     Active Substance: CARVEDILOL
     Indication: Blood pressure abnormal
     Dosage: DAILY (25 MG,1 IN 1 D)
     Route: 048
  19. CARVEDILOL [Concomitant]
     Active Substance: CARVEDILOL
     Indication: Hypertension
  20. PROMETRIUM [Concomitant]
     Active Substance: PROGESTERONE
     Indication: Routine health maintenance
     Dosage: DAILY (100 MG)
     Route: 048
  21. AMLODIPINE [Concomitant]
     Active Substance: AMLODIPINE BESYLATE
     Indication: Blood pressure abnormal
     Dosage: DAILY (5 MG,1 IN 1 D)
     Route: 048
  22. AMLODIPINE [Concomitant]
     Active Substance: AMLODIPINE BESYLATE
     Indication: Hypertension
  23. PERINDOPRI [Concomitant]
     Indication: Hypertension
     Dosage: DAILY (4 MG)
     Route: 048
  24. SYNTHROID [Concomitant]
     Active Substance: LEVOTHYROXINE SODIUM
     Indication: Hypothyroidism
     Dosage: DAILY (0.25 MG)
     Route: 048
  25. REPATHA [Concomitant]
     Active Substance: EVOLOCUMAB
     Indication: Blood cholesterol abnormal
     Dosage: SOLUTION SUBCUTANEOUS (1 IN 2 WK)
     Route: 065
  26. COVID-19 VACCINE [Concomitant]
     Indication: COVID-19 immunisation
     Dosage: INJECTION (1 IN 1 D)
     Dates: start: 20210419, end: 20210419
  27. ASPIRIN [Concomitant]
     Active Substance: ASPIRIN
     Indication: Cardiac disorder
     Dosage: DAILY (81 MG, 1 IN 1 D)
     Route: 048

REACTIONS (24)
  - Hallucination, visual [Recovered/Resolved]
  - Emotional distress [Not Recovered/Not Resolved]
  - Mobility decreased [Not Recovered/Not Resolved]
  - Hunger [Not Recovered/Not Resolved]
  - Pain in extremity [Recovered/Resolved]
  - Neck pain [Recovering/Resolving]
  - Extrasystoles [Not Recovered/Not Resolved]
  - Poor quality sleep [Recovering/Resolving]
  - Somnolence [Unknown]
  - Arthralgia [Recovered/Resolved]
  - Urinary tract infection [Not Recovered/Not Resolved]
  - Diarrhoea [Not Recovered/Not Resolved]
  - Constipation [Not Recovered/Not Resolved]
  - Dry mouth [Recovering/Resolving]
  - Vomiting [Not Recovered/Not Resolved]
  - Stress [Not Recovered/Not Resolved]
  - Nausea [Recovered/Resolved]
  - Alopecia [Not Recovered/Not Resolved]
  - Tremor [Not Recovered/Not Resolved]
  - Abdominal pain [Recovered/Resolved]
  - Headache [Recovered/Resolved]
  - Palpitations [Not Recovered/Not Resolved]
  - Dizziness [Recovered/Resolved]
  - Drug titration error [Unknown]

NARRATIVE: CASE EVENT DATE: 20200101
